FAERS Safety Report 24446206 (Version 1)
Quarter: 2024Q4

REPORT INFORMATION
  Report Type: Spontaneous
  Country: JP (occurrence: JP)
  Receive Date: 20241016
  Receipt Date: 20241016
  Transmission Date: 20250114
  Serious: Yes (Death, Hospitalization, Other)
  Sender: GLAND PHARMA LTD
  Company Number: JP-GLANDPHARMA-JP-2024GLNLIT00831

PATIENT
  Age: 52 Year
  Sex: Female

DRUGS (9)
  1. DEXAMETHASONE SODIUM PHOSPHATE [Suspect]
     Active Substance: DEXAMETHASONE SODIUM PHOSPHATE
     Indication: Dexamethasone suppression test
     Route: 065
  2. PREDNISOLONE [Suspect]
     Active Substance: PREDNISOLONE
     Indication: Psoriatic arthropathy
     Route: 048
  3. ETANERCEPT [Suspect]
     Active Substance: ETANERCEPT
     Indication: Psoriatic arthropathy
     Route: 065
  4. METHOTREXATE [Suspect]
     Active Substance: METHOTREXATE
     Indication: Psoriatic arthropathy
     Route: 065
  5. HYDROCORTISONE [Suspect]
     Active Substance: HYDROCORTISONE
     Indication: Adrenal insufficiency
     Route: 065
  6. METYRAPONE [Concomitant]
     Active Substance: METYRAPONE
     Indication: Ectopic ACTH syndrome
     Route: 065
  7. METYRAPONE [Concomitant]
     Active Substance: METYRAPONE
     Route: 065
  8. METYRAPONE [Concomitant]
     Active Substance: METYRAPONE
     Route: 065
  9. METYRAPONE [Concomitant]
     Active Substance: METYRAPONE
     Route: 065

REACTIONS (3)
  - Sepsis [Fatal]
  - Condition aggravated [Fatal]
  - Product use in unapproved indication [Unknown]
